FAERS Safety Report 12540721 (Version 5)
Quarter: 2017Q1

REPORT INFORMATION
  Report Type: Report from Study
  Country: AT (occurrence: AT)
  Receive Date: 20160708
  Receipt Date: 20170210
  Transmission Date: 20170428
  Serious: Yes (Death, Hospitalization, Other)
  Sender: FDA-Public Use
  Company Number: AT-INCYTE CORPORATION-2016IN001933

PATIENT
  Age: 69 Year
  Sex: Male
  Weight: 129 kg

DRUGS (3)
  1. JAKAVI [Suspect]
     Active Substance: RUXOLITINIB
     Indication: MYELOFIBROSIS
     Dosage: 5 MG, QD
     Route: 048
     Dates: start: 201404
  2. JAKAVI [Suspect]
     Active Substance: RUXOLITINIB
     Dosage: 10 MG, QD
     Route: 048
     Dates: start: 20140508, end: 201604
  3. JAKAVI [Suspect]
     Active Substance: RUXOLITINIB
     Dosage: 20 MG, UNK
     Route: 048

REACTIONS (19)
  - Generalised tonic-clonic seizure [Fatal]
  - Infection [Recovered/Resolved]
  - Oedema [Recovered/Resolved]
  - Subdural haematoma [Fatal]
  - Anaemia [Recovered/Resolved]
  - Thrombocytopenia [Recovered/Resolved]
  - Cardiac failure [Recovered/Resolved]
  - Thrombocytopenia [Recovered/Resolved]
  - Cellulitis [Recovered/Resolved]
  - Haemolytic anaemia [Recovered/Resolved]
  - Anal abscess [Recovered/Resolved]
  - Thrombocytopenia [Fatal]
  - Anaemia [Recovered/Resolved]
  - Pulmonary hypertension [Unknown]
  - Erythropoiesis abnormal [Unknown]
  - Bone marrow myelogram abnormal [Unknown]
  - Hidradenitis [Recovered/Resolved with Sequelae]
  - Inflammation [Recovered/Resolved]
  - Hordeolum [Recovered/Resolved]

NARRATIVE: CASE EVENT DATE: 201405
